FAERS Safety Report 8084462-7 (Version None)
Quarter: 2012Q1

REPORT INFORMATION
  Report Type: 
  Country: None (occurrence: None)
  Receive Date: 20120128
  Receipt Date: 20110324
  Transmission Date: 20120608
  Serious: No
  Sender: FDA-Public Use
  Company Number: US-ABBOTT-11P-163-0714033-00

PATIENT
  Sex: Female
  Weight: 64.014 kg

DRUGS (2)
  1. CELEBREX [Concomitant]
     Indication: PRODUCT USED FOR UNKNOWN INDICATION
  2. HUMIRA [Suspect]
     Indication: RHEUMATOID ARTHRITIS
     Dates: start: 20060101

REACTIONS (3)
  - ARTHRALGIA [None]
  - SKIN WARM [None]
  - ERYTHEMA [None]
